FAERS Safety Report 25685431 (Version 1)
Quarter: 2025Q3

REPORT INFORMATION
  Report Type: Spontaneous
  Country: EU (occurrence: EU)
  Receive Date: 20250815
  Receipt Date: 20250815
  Transmission Date: 20251020
  Serious: Yes (Hospitalization, Other)
  Sender: PFIZER
  Company Number: None

PATIENT
  Age: 77 Year
  Sex: Male

DRUGS (2)
  1. GEMCITABINE HYDROCHLORIDE [Suspect]
     Active Substance: GEMCITABINE HYDROCHLORIDE
     Indication: Lung adenocarcinoma
     Route: 042
     Dates: start: 20250630, end: 20250714
  2. ONDANSETRON [Suspect]
     Active Substance: ONDANSETRON
     Indication: Chemotherapy side effect prophylaxis
     Route: 042
     Dates: start: 20250630, end: 20250714

REACTIONS (5)
  - Ileus paralytic [Unknown]
  - Constipation [Unknown]
  - Metastases to lymph nodes [Unknown]
  - Lung adenocarcinoma [Unknown]
  - Malignant neoplasm progression [Unknown]

NARRATIVE: CASE EVENT DATE: 20250101
